FAERS Safety Report 6174012-4 (Version None)
Quarter: 2009Q2

REPORT INFORMATION
  Report Type: 
  Country: None (occurrence: None)
  Receive Date: 20090430
  Receipt Date: 20090112
  Transmission Date: 20091009
  Serious: No
  Sender: FDA-Public Use
  Company Number: US-ASTRAZENECA-2007UW25080

PATIENT
  Age: 83 Year
  Sex: Female
  Weight: 64.4 kg

DRUGS (7)
  1. NEXIUM [Suspect]
     Indication: DYSPEPSIA
     Route: 048
     Dates: start: 20080617, end: 20080623
  2. NEXIUM [Suspect]
     Indication: FLATULENCE
     Route: 048
     Dates: start: 20080617, end: 20080623
  3. NEXIUM [Suspect]
     Indication: GASTROOESOPHAGEAL REFLUX DISEASE
     Route: 048
     Dates: start: 20080617, end: 20080623
  4. ASPIRIN [Concomitant]
  5. LASIX [Concomitant]
  6. ALLOPURINOL [Concomitant]
  7. THEOPHYLLINE [Concomitant]

REACTIONS (2)
  - DYSGEUSIA [None]
  - PALPITATIONS [None]
